FAERS Safety Report 6735421-5 (Version None)
Quarter: 2010Q2

REPORT INFORMATION
  Report Type: 
  Country: None (occurrence: None)
  Receive Date: 20100519
  Receipt Date: 20100504
  Transmission Date: 20101027
  Serious: Yes (Hospitalization)
  Sender: FDA-Public Use
  Company Number: DKLU1062273

PATIENT
  Age: 6 Month
  Sex: Female

DRUGS (8)
  1. SABRIL [Suspect]
     Indication: EPILEPSY
     Dosage: SEE IMAGE
     Route: 048
     Dates: start: 20091112, end: 20091113
  2. SABRIL [Suspect]
     Indication: EPILEPSY
     Dosage: SEE IMAGE
     Route: 048
     Dates: start: 20091114, end: 20091123
  3. SABRIL [Suspect]
     Indication: EPILEPSY
     Dosage: SEE IMAGE
     Route: 048
     Dates: start: 20091124, end: 20091207
  4. SABRIL [Suspect]
     Indication: EPILEPSY
     Dosage: SEE IMAGE
     Route: 048
     Dates: start: 20091208
  5. TETRACOSACTIDE (TERACOSACTIDE) (SOLUTION FOR INFUSION) [Suspect]
     Indication: EPILEPSY
     Dosage: SEE IMAGE
     Dates: start: 20091110, end: 20091129
  6. TETRACOSACTIDE (TERACOSACTIDE) (SOLUTION FOR INFUSION) [Suspect]
     Indication: EPILEPSY
     Dosage: SEE IMAGE
     Dates: start: 20091130, end: 20091215
  7. TETRACOSACTIDE (TERACOSACTIDE) (SOLUTION FOR INFUSION) [Suspect]
     Indication: EPILEPSY
     Dosage: SEE IMAGE
     Dates: start: 20091216, end: 20091221
  8. TETRACOSACTIDE (TERACOSACTIDE) (SOLUTION FOR INFUSION) [Suspect]
     Indication: EPILEPSY
     Dosage: SEE IMAGE
     Dates: start: 20091222, end: 20091229

REACTIONS (6)
  - AMINO ACID LEVEL INCREASED [None]
  - CEREBRAL INFARCTION [None]
  - COORDINATION ABNORMAL [None]
  - HEMIPARESIS [None]
  - LETHARGY [None]
  - VITAMIN B12 DEFICIENCY [None]
